FAERS Safety Report 4331181-6 (Version None)
Quarter: 2004Q2

REPORT INFORMATION
  Report Type: 
  Country: None (occurrence: None)
  Receive Date: 20040402
  Receipt Date: 20040322
  Transmission Date: 20050107
  Serious: Yes (Hospitalization)
  Sender: FDA-Public Use
  Company Number: A-CH2004-05482

PATIENT
  Age: 85 Year
  Sex: Female

DRUGS (5)
  1. TRACLEER [Suspect]
     Indication: PULMONARY HYPERTENSION
     Dosage: 62.5 MG, BID, ORAL
     Route: 048
     Dates: start: 20040130
  2. INSULIN [Concomitant]
  3. LOVENOX (HEPARIN, SODIUM SALT) [Concomitant]
  4. ASPIRIN [Concomitant]
  5. LASIX [Concomitant]

REACTIONS (5)
  - BACTERIA URINE IDENTIFIED [None]
  - CARDIAC FAILURE [None]
  - CHOLELITHIASIS [None]
  - IRON DEFICIENCY ANAEMIA [None]
  - PROTEUS INFECTION [None]
